FAERS Safety Report 5236001-3 (Version None)
Quarter: 2007Q1

REPORT INFORMATION
  Report Type: 
  Country: None (occurrence: None)
  Receive Date: 20061208
  Receipt Date: 20060525
  Transmission Date: 20070707
  Serious: Yes (Other)
  Sender: FDA-Public Use
  Company Number: 2006UW10273

PATIENT
  Age: 72 Year
  Sex: Male
  Weight: 96.161 kg

DRUGS (1)
  1. CRESTOR [Suspect]
     Indication: BLOOD CHOLESTEROL INCREASED
     Dosage: 10 MG QD PO
     Route: 048
     Dates: start: 20040427

REACTIONS (4)
  - CARDIAC FLUTTER [None]
  - DIZZINESS [None]
  - EYE DISORDER [None]
  - NAUSEA [None]
